FAERS Safety Report 26087256 (Version 1)
Quarter: 2025Q4

REPORT INFORMATION
  Report Type: Spontaneous
  Country: CN (occurrence: CN)
  Receive Date: 20251125
  Receipt Date: 20251125
  Transmission Date: 20260118
  Serious: Yes (Hospitalization)
  Sender: NOVARTIS
  Company Number: CN-002147023-NVSC2025CN179891

PATIENT
  Age: 14 Year
  Sex: Female
  Weight: 57 kg

DRUGS (4)
  1. SACUBITRIL\VALSARTAN [Suspect]
     Active Substance: SACUBITRIL\VALSARTAN
     Indication: Malignant hypertension
     Dosage: 100 MG, Q12H
     Route: 048
     Dates: start: 20251016, end: 20251020
  2. SACUBITRIL\VALSARTAN [Suspect]
     Active Substance: SACUBITRIL\VALSARTAN
     Indication: Nephropathy
     Dosage: 200 MG, Q12H
     Route: 048
     Dates: start: 20251021, end: 20251028
  3. FOSINOPRIL SODIUM [Suspect]
     Active Substance: FOSINOPRIL SODIUM
     Indication: Malignant hypertension
     Dosage: 20 MG, Q12H
     Route: 048
     Dates: start: 20251022, end: 20251022
  4. FOSINOPRIL SODIUM [Suspect]
     Active Substance: FOSINOPRIL SODIUM
     Indication: Nephropathy
     Dosage: 20 MG, Q8H
     Route: 048
     Dates: start: 20251023, end: 20251028

REACTIONS (11)
  - Angioedema [Recovering/Resolving]
  - Dizziness [Recovering/Resolving]
  - Nausea [Not Recovered/Not Resolved]
  - Vomiting [Not Recovered/Not Resolved]
  - Pyrexia [Recovering/Resolving]
  - Cough [Recovering/Resolving]
  - Constipation [Recovering/Resolving]
  - Swelling face [Recovering/Resolving]
  - Abdominal distension [Recovering/Resolving]
  - Pain [Unknown]
  - Off label use [Unknown]

NARRATIVE: CASE EVENT DATE: 20251023
